FAERS Safety Report 21122710 (Version 1)
Quarter: 2022Q3

REPORT INFORMATION
  Report Type: Spontaneous
  Country: US (occurrence: US)
  Receive Date: 20220723
  Receipt Date: 20220723
  Transmission Date: 20221026
  Serious: No
  Sender: FDA-Public Use
  Company Number: US-AMGEN-USASP2022125045

PATIENT
  Age: 73 Year
  Sex: Female

DRUGS (1)
  1. EVENITY [Suspect]
     Active Substance: ROMOSOZUMAB-AQQG
     Indication: Product used for unknown indication
     Dosage: 210 MILLIGRAM, QMO
     Route: 058
     Dates: start: 20220523

REACTIONS (5)
  - Arthralgia [Unknown]
  - Headache [Unknown]
  - Urine odour abnormal [Unknown]
  - Pain of skin [Unknown]
  - Sensitive skin [Unknown]

NARRATIVE: CASE EVENT DATE: 20220501
